FAERS Safety Report 4946492-0 (Version None)
Quarter: 2006Q1

REPORT INFORMATION
  Report Type: 
  Country: None (occurrence: None)
  Receive Date: 20060313
  Receipt Date: 20060302
  Transmission Date: 20060701
  Serious: Yes (Hospitalization, Other)
  Sender: FDA-Public Use
  Company Number: 2006-03-0113

PATIENT
  Age: 64 Year
  Sex: Female

DRUGS (6)
  1. TEMODAR [Suspect]
     Indication: GLIOBLASTOMA MULTIFORME
     Dosage: 75-200MG/M^2 ORAL
     Route: 048
     Dates: start: 20050823
  2. GLIADEL [Suspect]
     Indication: GLIOBLASTOMA MULTIFORME
     Dosage: 61.6 MG INTRACRANIAL
     Dates: start: 20050712
  3. ESOMEPRAZOLE [Concomitant]
  4. PHENOBARBITAL TAB [Concomitant]
  5. ATORVASTATIN CALCIUM [Concomitant]
  6. HYDROCODONE PRN [Concomitant]

REACTIONS (7)
  - BALANCE DISORDER [None]
  - FALL [None]
  - HAEMORRHAGE [None]
  - HEAD INJURY [None]
  - SUBDURAL HAEMATOMA [None]
  - THROMBOCYTOPENIA [None]
  - THYROID CYST [None]
